FAERS Safety Report 13106435 (Version 2)
Quarter: 2017Q1

REPORT INFORMATION
  Report Type: Report from Study
  Country: US (occurrence: US)
  Receive Date: 20170111
  Receipt Date: 20170116
  Transmission Date: 20170428
  Serious: Yes (Hospitalization, Other)
  Sender: FDA-Public Use
  Company Number: US-GILEAD-2017-0252717

PATIENT
  Age: 40 Year
  Sex: Female

DRUGS (2)
  1. EPOPROSTENOL. [Concomitant]
     Active Substance: EPOPROSTENOL
  2. AMBRISENTAN [Suspect]
     Active Substance: AMBRISENTAN
     Indication: PRODUCT USED FOR UNKNOWN INDICATION
     Dosage: 5 MG, QD
     Route: 065
     Dates: start: 20161027

REACTIONS (2)
  - Delirium [Unknown]
  - Sepsis [Unknown]

NARRATIVE: CASE EVENT DATE: 20161205
